FAERS Safety Report 4767157-4 (Version None)
Quarter: 2005Q3

REPORT INFORMATION
  Report Type: 
  Country: None (occurrence: None)
  Receive Date: 20050909
  Receipt Date: 20050831
  Transmission Date: 20060218
  Serious: Yes (Death)
  Sender: FDA-Public Use
  Company Number: 2005-08-2280

PATIENT
  Age: 62 Year
  Sex: Male

DRUGS (1)
  1. INTRON A [Suspect]
     Indication: METASTATIC RENAL CELL CARCINOMA
     Dosage: 10 MIU TIW SUBCUTANEOUS
     Route: 058

REACTIONS (1)
  - DEATH [None]
